FAERS Safety Report 7074368-4 (Version None)
Quarter: 2010Q4

REPORT INFORMATION
  Report Type: 
  Country: None (occurrence: None)
  Receive Date: 20101029
  Receipt Date: 20101026
  Transmission Date: 20110411
  Serious: Yes (Death)
  Sender: FDA-Public Use
  Company Number: DE-ROCHE-737072

PATIENT
  Sex: Female

DRUGS (3)
  1. CAPECITABINE [Suspect]
     Dosage: RCVD 4 CYCLES
     Route: 065
     Dates: start: 20071128, end: 20080219
  2. CARBOPLATIN [Concomitant]
     Dates: start: 20080221
  3. GEMCITABINE [Concomitant]
     Dates: start: 20080221

REACTIONS (1)
  - MALIGNANT NEOPLASM PROGRESSION [None]
